FAERS Safety Report 12244932 (Version 1)
Quarter: 2016Q2

REPORT INFORMATION
  Report Type: Spontaneous
  Country: SI (occurrence: SI)
  Receive Date: 20160407
  Receipt Date: 20160407
  Transmission Date: 20160815
  Serious: Yes (Life-Threatening, Hospitalization, Other)
  Sender: FDA-Public Use
  Company Number: PHHY2015SI107568

PATIENT
  Age: 64 Year
  Sex: Male

DRUGS (2)
  1. TASIGNA [Suspect]
     Active Substance: NILOTINIB
     Indication: CHRONIC MYELOID LEUKAEMIA
     Dosage: 300 MG, BID
     Route: 048
  2. TASIGNA [Suspect]
     Active Substance: NILOTINIB
     Dosage: 400 MG, BID
     Route: 065

REACTIONS (12)
  - Ischaemic limb pain [Unknown]
  - Intermittent claudication [Unknown]
  - Gangrene [Unknown]
  - Diabetes mellitus [Unknown]
  - No therapeutic response [Unknown]
  - Central nervous system lesion [Unknown]
  - Hemiparesis [Unknown]
  - Atrial fibrillation [Unknown]
  - Peripheral arterial occlusive disease [Unknown]
  - Carotid artery stenosis [Unknown]
  - Cerebrovascular accident [Unknown]
  - Vertigo [Unknown]

NARRATIVE: CASE EVENT DATE: 201403
